FAERS Safety Report 13899077 (Version 1)
Quarter: 2017Q3

REPORT INFORMATION
  Report Type: Spontaneous
  Country: US (occurrence: None)
  Receive Date: 20170818
  Receipt Date: 20170818
  Transmission Date: 20171127
  Serious: Yes (Hospitalization)
  Sender: FDA-Public Use
  Company Number: None

PATIENT
  Sex: Male
  Weight: 80.9 kg

DRUGS (2)
  1. 5-FLUOROURACIL (5-FU) [Suspect]
     Active Substance: FLUOROURACIL
     Dates: end: 20170729
  2. CISPLATIN. [Suspect]
     Active Substance: CISPLATIN
     Dates: end: 20170725

REACTIONS (3)
  - Escherichia test positive [None]
  - Septic shock [None]
  - Anaemia [None]

NARRATIVE: CASE EVENT DATE: 20170813
